FAERS Safety Report 8129466 (Version 2)
Quarter: 2013Q2

REPORT INFORMATION
  Report Type: Report from Study
  Country: MX (occurrence: MX)
  Receive Date: 20110909
  Receipt Date: 20130506
  Transmission Date: 20140414
  Serious: Yes (Life-Threatening, Hospitalization)
  Sender: FDA-Public Use
  Company Number: PHHY2011MX79278

PATIENT
  Age: 80 Year
  Sex: Female

DRUGS (2)
  1. EXFORGE HCT [Suspect]
     Indication: HYPERTENSION
     Dosage: 1 DF, BID (VALSARTAN 160 MG, AMLODIPINE 5 MG, HYDROCHLOROTHIAZIDE 12.5 MG)
     Dates: start: 20110728
  2. RASILEZ (ALISKIREN) [Concomitant]
     Dosage: TWICE DAY

REACTIONS (2)
  - Cardiomegaly [Recovered/Resolved]
  - Blood pressure increased [Recovered/Resolved]
